FAERS Safety Report 23050675 (Version 4)
Quarter: 2024Q2

REPORT INFORMATION
  Report Type: Report from Study
  Country: CA (occurrence: CA)
  Receive Date: 20231010
  Receipt Date: 20240409
  Transmission Date: 20240716
  Serious: Yes (Other)
  Sender: FDA-Public Use
  Company Number: CA-JNJFOC-20231014914

PATIENT
  Age: 8 Year
  Sex: Male
  Weight: 26 kg

DRUGS (4)
  1. REMICADE [Suspect]
     Active Substance: INFLIXIMAB
     Indication: Crohn^s disease
     Dosage: DOSE ROUNDED TO COMPLETE THE VIAL MAKING IT OFF LABEL
     Route: 041
     Dates: start: 20231006
  2. REMICADE [Suspect]
     Active Substance: INFLIXIMAB
     Dosage: DOSE ROUNDED TO COMPLETE THE VIAL MAKING IT OFF LABEL
     Route: 041
     Dates: start: 20231020
  3. REMICADE [Suspect]
     Active Substance: INFLIXIMAB
     Route: 041
  4. REMICADE [Suspect]
     Active Substance: INFLIXIMAB
     Route: 041

REACTIONS (4)
  - Crohn^s disease [Unknown]
  - Off label use [Unknown]
  - Off label use [Unknown]
  - Incorrect drug administration rate [Unknown]
